FAERS Safety Report 24130055 (Version 1)
Quarter: 2024Q3

REPORT INFORMATION
  Report Type: Spontaneous
  Country: US (occurrence: US)
  Receive Date: 20240724
  Receipt Date: 20240724
  Transmission Date: 20241016
  Serious: No
  Sender: ROCHE
  Company Number: US-ROCHE-3576053

PATIENT
  Age: 52 Year
  Sex: Female
  Weight: 72.57 kg

DRUGS (4)
  1. XOLAIR [Suspect]
     Active Substance: OMALIZUMAB
     Indication: Anaphylactic reaction
     Dosage: 2 INJECTION
     Route: 030
     Dates: start: 20240312
  2. XOLAIR [Suspect]
     Active Substance: OMALIZUMAB
     Indication: Nasal polyps
  3. PEPCID AC [Concomitant]
     Active Substance: FAMOTIDINE
     Indication: Hypersensitivity
     Dosage: ONCE IN THE MORNING AND ONE AT NIGHT. IF HAVING AN ALLERGIC REACTION DOSE IS DOUBLED
     Route: 048
     Dates: start: 202402
  4. ZYRTEC [Concomitant]
     Active Substance: CETIRIZINE HYDROCHLORIDE
     Indication: Hypersensitivity
     Dosage: 24 HOUR DOSE WHEN HAVING AN ALLERGIC REACTION DOSE IS DOUBLED.
     Route: 048
     Dates: start: 202402

REACTIONS (4)
  - Alopecia [Not Recovered/Not Resolved]
  - Nausea [Recovered/Resolved]
  - Off label use [Unknown]
  - Off label use [Unknown]

NARRATIVE: CASE EVENT DATE: 20240312
